FAERS Safety Report 26095305 (Version 1)
Quarter: 2025Q4

REPORT INFORMATION
  Report Type: Spontaneous
  Country: EU (occurrence: EU)
  Receive Date: 20251127
  Receipt Date: 20251127
  Transmission Date: 20260118
  Serious: Yes (Life-Threatening, Hospitalization)
  Sender: ABBVIE
  Company Number: None

PATIENT
  Age: 58 Year
  Sex: Female
  Weight: 69 kg

DRUGS (12)
  1. PREDNISOLONE [Suspect]
     Active Substance: PREDNISOLONE
     Indication: Product used for unknown indication
     Route: 065
  2. FLUDROCORTISONE [Concomitant]
     Active Substance: FLUDROCORTISONE
     Indication: Product used for unknown indication
     Dosage: TABLET, 100 ?G (MICROGRAM), FLORINEF TABLET 0,1MG
     Route: 048
  3. INSULIN ASPART [Concomitant]
     Active Substance: INSULIN ASPART
     Indication: Product used for unknown indication
     Dosage: INFUSION FLUID, 1 UNITS/ML (UNITS PER MILLILITER)
     Route: 065
  4. FOLIC ACID [Concomitant]
     Active Substance: FOLIC ACID
     Indication: Product used for unknown indication
     Dosage: TABLET, 5 MG (MILLIGRAM)
     Route: 048
  5. HYDROCORTISONE [Concomitant]
     Active Substance: HYDROCORTISONE
     Indication: Product used for unknown indication
     Dosage: 20-10-10 SCHEDULE (YES, PATIENT REALLY DID USE 40MG HYDROCORTISONE ON TOP OF 80MG PREDNISONE)
  6. ADALIMUMAB [Concomitant]
     Active Substance: ADALIMUMAB
     Indication: Product used for unknown indication
     Dosage: 40MG PER WEEK
     Route: 065
  7. EUTHYROX [Concomitant]
     Active Substance: LEVOTHYROXINE SODIUM
     Indication: Product used for unknown indication
     Dosage: TABLET, 100 ?G (MICROGRAM) (NATRIUM) / EUTHYROX TABLET 100MCG
     Route: 048
  8. CALCIUM CARBONATE\CHOLECALCIFEROL [Concomitant]
     Active Substance: CALCIUM CARBONATE\CHOLECALCIFEROL
     Indication: Product used for unknown indication
     Dosage: CALCIUM CARB/COLECALC CHEWABLE 1.25G/800IU (500MG CA) / CALCI CHEW D3 CHEWABLE TABLET  500MG/800IU
     Route: 048
  9. NAPROXEN [Concomitant]
     Active Substance: NAPROXEN
     Indication: Product used for unknown indication
     Dosage: STOMACH ACID RESISTANT TABLET, 500 MG (MILLIGRAM)
     Route: 048
  10. PREDNISOLONE [Suspect]
     Active Substance: PREDNISOLONE
     Indication: Pyoderma gangrenosum
     Dosage: 1X DAILY 4 PIECES
     Route: 048
     Dates: start: 20231220
  11. PREDNISOLONE [Suspect]
     Active Substance: PREDNISOLONE
     Indication: Pyoderma gangrenosum
     Dosage: CAPSULE 20MG?DOSE DECREASED
     Route: 065
     Dates: start: 20240118
  12. OMEPRAZOLE [Concomitant]
     Active Substance: OMEPRAZOLE
     Indication: Product used for unknown indication
     Dosage: STOMACH ACID INHIBITOR OMEPRAZOLE CF CAPSULE STOMACH ACID RESISTANT  20MG, STOMACH ACID RESISTANT...
     Route: 048

REACTIONS (4)
  - Cerebrovascular accident [Unknown]
  - Pulmonary embolism [Recovered/Resolved]
  - Obstructive shock [Recovered/Resolved]
  - Deep vein thrombosis [Recovered/Resolved]
